FAERS Safety Report 17129005 (Version 1)
Quarter: 2019Q4

REPORT INFORMATION
  Report Type: Spontaneous
  Country: CA (occurrence: CA)
  Receive Date: 20191209
  Receipt Date: 20191209
  Transmission Date: 20200122
  Serious: Yes (Other)
  Sender: FDA-Public Use
  Company Number: CA-PFIZER INC-2019530601

PATIENT
  Age: 58 Year
  Sex: Female
  Weight: 72.56 kg

DRUGS (2)
  1. CELEBREX [Suspect]
     Active Substance: CELECOXIB
     Indication: NECK PAIN
     Dosage: 200 MG, 2X/DAY
     Route: 048
  2. CELEBREX [Suspect]
     Active Substance: CELECOXIB
     Indication: HEADACHE

REACTIONS (3)
  - Headache [Recovered/Resolved]
  - Flushing [Recovered/Resolved]
  - Blood pressure systolic increased [Recovered/Resolved]
